FAERS Safety Report 5079943-4 (Version None)
Quarter: 2006Q3

REPORT INFORMATION
  Report Type: 
  Country: None (occurrence: None)
  Receive Date: 20060809
  Receipt Date: 20060727
  Transmission Date: 20061208
  Serious: Yes (Death, Hospitalization)
  Sender: FDA-Public Use
  Company Number: 227149

PATIENT
  Age: 26 Year
  Sex: Female
  Weight: 109 kg

DRUGS (7)
  1. EFALIZUMAB ( EFALIZUMAB) PWDR + SOLVENT , INJECTION SOLN, 125 MG [Suspect]
     Indication: PSORIASIS
     Dosage: SEE IMAGE
     Route: 058
     Dates: start: 20050622, end: 20060526
  2. EFALIZUMAB ( EFALIZUMAB) PWDR + SOLVENT , INJECTION SOLN, 125 MG [Suspect]
     Indication: PSORIASIS
     Dosage: SEE IMAGE
     Route: 058
     Dates: start: 20060606
  3. CLOBEX [Concomitant]
  4. COUMADIN [Concomitant]
  5. PROTOPIC OINTMENT (TACROLIMUS) [Concomitant]
  6. WELLBUTRIN [Concomitant]
  7. TOPICAL STEROIDS [Concomitant]

REACTIONS (40)
  - ARTHRALGIA [None]
  - ASPARTATE AMINOTRANSFERASE INCREASED [None]
  - ASTHENIA [None]
  - BACK PAIN [None]
  - BLOOD ALKALINE PHOSPHATASE INCREASED [None]
  - BLOOD BILIRUBIN INCREASED [None]
  - BLOOD CHLORIDE INCREASED [None]
  - BLOOD GLUCOSE INCREASED [None]
  - BLOOD PH DECREASED [None]
  - BLOOD POTASSIUM DECREASED [None]
  - BLOOD PRESSURE DECREASED [None]
  - BLOOD PRESSURE INCREASED [None]
  - BLOOD SODIUM DECREASED [None]
  - BLOOD SODIUM INCREASED [None]
  - BRAIN DEATH [None]
  - BRAIN OEDEMA [None]
  - CHEST DISCOMFORT [None]
  - COUGH [None]
  - DRUG SCREEN POSITIVE [None]
  - ENCEPHALITIS [None]
  - ENCEPHALITIS VIRAL [None]
  - ERYTHEMA [None]
  - HEADACHE [None]
  - HYPOTENSION [None]
  - IRRITABILITY [None]
  - MENINGITIS [None]
  - MUSCULOSKELETAL DISCOMFORT [None]
  - NAUSEA [None]
  - NERVOUS SYSTEM DISORDER [None]
  - OEDEMA PERIPHERAL [None]
  - PCO2 DECREASED [None]
  - PLATELET COUNT DECREASED [None]
  - PO2 INCREASED [None]
  - PUPIL FIXED [None]
  - RESPIRATORY FAILURE [None]
  - SINUSITIS [None]
  - SPLENOMEGALY [None]
  - SUBARACHNOID HAEMORRHAGE [None]
  - VIRAL INFECTION [None]
  - VOMITING [None]
